FAERS Safety Report 9819914 (Version 1)
Quarter: 2014Q1

REPORT INFORMATION
  Report Type: Spontaneous
  Country: US (occurrence: US)
  Receive Date: 20140116
  Receipt Date: 20140116
  Transmission Date: 20141002
  Serious: No
  Sender: FDA-Public Use
  Company Number: US-PFIZER INC-2014010560

PATIENT
  Age: 65 Year
  Sex: Male

DRUGS (8)
  1. LIPITOR [Suspect]
     Dosage: UNK
  2. HYDROCHLOROTHIAZIDE [Suspect]
     Dosage: UNK
  3. CARDIZEM [Suspect]
     Dosage: UNK
  4. METOPROLOL TARTRATE [Suspect]
     Dosage: UNK
  5. SIMVASTATIN [Suspect]
     Dosage: UNK
  6. INDAPAMIDE [Suspect]
     Dosage: UNK
  7. LESCOL [Suspect]
     Dosage: UNK
  8. PRAVACHOL [Suspect]
     Dosage: UNK

REACTIONS (1)
  - Drug hypersensitivity [Unknown]
